FAERS Safety Report 8545226-0 (Version None)
Quarter: 2012Q3

REPORT INFORMATION
  Report Type: 
  Country: None (occurrence: None)
  Receive Date: 20120727
  Receipt Date: 20120716
  Transmission Date: 20120928
  Serious: Yes (Hospitalization, Disabling, Other)
  Sender: FDA-Public Use
  Company Number: US-009507513-1011USA01580

PATIENT

DRUGS (3)
  1. FOSAMAX [Suspect]
     Indication: OSTEOPENIA
     Dosage: 70 MG, QW
     Route: 048
     Dates: start: 19981101, end: 20080601
  2. MK-9355 [Concomitant]
     Indication: NEPHROLITHIASIS
     Dates: start: 19890101
  3. FOSAMAX [Suspect]
     Dosage: 70 MG, QW
     Route: 048
     Dates: start: 20080725, end: 20090101

REACTIONS (46)
  - URINARY TRACT INFECTION [None]
  - DIZZINESS [None]
  - HYDRONEPHROSIS [None]
  - FEMUR FRACTURE [None]
  - OSTEOPOROSIS [None]
  - RUPTURED CEREBRAL ANEURYSM [None]
  - PHOTOPSIA [None]
  - FATIGUE [None]
  - LACTOSE INTOLERANCE [None]
  - MYCOTIC ALLERGY [None]
  - BURSITIS [None]
  - BODY HEIGHT DECREASED [None]
  - GASTROOESOPHAGEAL REFLUX DISEASE [None]
  - SUBARACHNOID HAEMORRHAGE [None]
  - ALLERGY TO ANIMAL [None]
  - OSTEOARTHRITIS [None]
  - SPINAL OSTEOARTHRITIS [None]
  - CERVICOBRACHIAL SYNDROME [None]
  - SPONDYLOLISTHESIS [None]
  - DYSPHAGIA [None]
  - LOW TURNOVER OSTEOPATHY [None]
  - ANAEMIA [None]
  - HYDROCEPHALUS [None]
  - HYPERSENSITIVITY [None]
  - SINUS TACHYCARDIA [None]
  - HIATUS HERNIA [None]
  - HYPOKALAEMIA [None]
  - HAEMORRHAGIC ANAEMIA [None]
  - LIMB DISCOMFORT [None]
  - SEASONAL ALLERGY [None]
  - CONTUSION [None]
  - MUSCLE SPASMS [None]
  - PNEUMONITIS [None]
  - ASTHMA [None]
  - EXOSTOSIS [None]
  - ARTHRITIS [None]
  - CALCULUS URETERIC [None]
  - NEUROPATHY PERIPHERAL [None]
  - SPINAL COLUMN STENOSIS [None]
  - GASTROINTESTINAL DISORDER [None]
  - JOINT SWELLING [None]
  - FALL [None]
  - BONE DISORDER [None]
  - HYPOTENSION [None]
  - INTERVERTEBRAL DISC DEGENERATION [None]
  - CYST [None]
